FAERS Safety Report 20485795 (Version 1)
Quarter: 2022Q1

REPORT INFORMATION
  Report Type: Spontaneous
  Country: US (occurrence: US)
  Receive Date: 20220217
  Receipt Date: 20220217
  Transmission Date: 20220423
  Serious: Yes (Hospitalization)
  Sender: FDA-Public Use
  Company Number: US-PARI RESPIRATORY EQUIPMENT, INC.-2022PAR00011

PATIENT
  Age: 16 Year
  Sex: Female

DRUGS (20)
  1. KITABIS PAK [Suspect]
     Active Substance: TOBRAMYCIN
     Indication: Cystic fibrosis
     Dosage: 5 ML (300 MG TOTAL) VIA NEBULIZER, 2X/DAY FOR 28 DAYS ON, 28 DAYS OFF
     Dates: start: 20180922
  2. AZITHROMYCIN [Concomitant]
     Active Substance: AZITHROMYCIN
  3. SODIUM CHLORIDE [Concomitant]
     Active Substance: SODIUM CHLORIDE
  4. LORATADINE [Concomitant]
     Active Substance: LORATADINE
  5. MVW D5000 [Concomitant]
  6. ONDANSETRON [Concomitant]
     Active Substance: ONDANSETRON
  7. OXYBUTYNIN [Concomitant]
     Active Substance: OXYBUTYNIN
  8. PANTOPRAZOLE SODIUM [Concomitant]
     Active Substance: PANTOPRAZOLE SODIUM
  9. POLYETHYLENE GLYCOL 3350 [Concomitant]
     Active Substance: POLYETHYLENE GLYCOL 3350
  10. PROAIR HFA [Concomitant]
     Active Substance: ALBUTEROL SULFATE
  11. PROMETHAZINE HYDROCHLORIDE [Concomitant]
     Active Substance: PROMETHAZINE HYDROCHLORIDE
  12. PULMOZYME [Concomitant]
     Active Substance: DORNASE ALFA
  13. LORATADINE ALLERGY [Concomitant]
  14. SODIUM CHLORIDE [Concomitant]
     Active Substance: SODIUM CHLORIDE
  15. TAMSULOSIN [Concomitant]
     Active Substance: TAMSULOSIN
  16. TRIKAFTA [Concomitant]
     Active Substance: ELEXACAFTOR\IVACAFTOR\TEZACAFTOR
  17. URSODIOL [Concomitant]
     Active Substance: URSODIOL
  18. VITAMIN D [Concomitant]
     Active Substance: VITAMIN D NOS
  19. VITAMIN D3 [Concomitant]
     Active Substance: CHOLECALCIFEROL
  20. ZENPEP [Concomitant]
     Active Substance: PANCRELIPASE AMYLASE\PANCRELIPASE LIPASE\PANCRELIPASE PROTEASE

REACTIONS (2)
  - Nephrolithiasis [Unknown]
  - Gastrointestinal disorder [Unknown]

NARRATIVE: CASE EVENT DATE: 20220101
